FAERS Safety Report 4506088-1 (Version None)
Quarter: 2004Q4

REPORT INFORMATION
  Report Type: 
  Country: None (occurrence: None)
  Receive Date: 20041025
  Receipt Date: 20040507
  Transmission Date: 20050328
  Serious: Yes (Other)
  Sender: FDA-Public Use
  Company Number: US-JNJFOC-20040501374

PATIENT
  Age: 66 Year
  Sex: Female
  Weight: 63.5036 kg

DRUGS (9)
  1. INFLIXIMAB (INFLIXIMAB, RECOMBINANT) LYOPHILIZED POWDER [Suspect]
     Indication: RHEUMATOID ARTHRITIS
     Dosage: INTRAVENOUS
     Route: 042
     Dates: start: 20000901, end: 20031031
  2. METOPROLOL TARTRATE [Concomitant]
  3. CLONAZEPAM [Concomitant]
  4. CELEBREX [Concomitant]
  5. PREVACID [Concomitant]
  6. PAXIL [Concomitant]
  7. TRAZODONE HCL [Concomitant]
  8. DARVOCET-N (PROPACET) [Concomitant]
  9. FLONASE [Concomitant]

REACTIONS (2)
  - CANDIDIASIS [None]
  - FOLLICULITIS [None]
